FAERS Safety Report 25714665 (Version 1)
Quarter: 2025Q3

REPORT INFORMATION
  Report Type: Spontaneous
  Country: US (occurrence: US)
  Receive Date: 20250822
  Receipt Date: 20250822
  Transmission Date: 20251021
  Serious: Yes (Other)
  Sender: GALPHARM INTERNATIONAL
  Company Number: US-PERRIGO-25US010091

PATIENT
  Sex: Female

DRUGS (1)
  1. OPILL [Suspect]
     Active Substance: NORGESTREL
     Indication: Oral contraception
     Route: 048
     Dates: start: 2024

REACTIONS (2)
  - Pregnancy on oral contraceptive [Recovered/Resolved]
  - Abortion spontaneous [Recovered/Resolved]
